FAERS Safety Report 14034432 (Version 1)
Quarter: 2017Q4

REPORT INFORMATION
  Report Type: Spontaneous
  Country: FR (occurrence: FR)
  Receive Date: 20171003
  Receipt Date: 20171003
  Transmission Date: 20180321
  Serious: Yes (Other)
  Sender: FDA-Public Use
  Company Number: FR-MERCK KGAA-2028616

PATIENT
  Age: 62 Year
  Sex: Female

DRUGS (1)
  1. NOVOTHYROX [Suspect]
     Active Substance: LEVOTHYROXINE SODIUM
     Indication: HYPOTHYROIDISM
     Route: 048
     Dates: start: 20170701

REACTIONS (7)
  - Dizziness [Unknown]
  - Myalgia [Unknown]
  - Abdominal distension [Unknown]
  - Weight increased [Unknown]
  - Fatigue [Unknown]
  - Blood thyroid stimulating hormone increased [Unknown]
  - Hyperhidrosis [Unknown]

NARRATIVE: CASE EVENT DATE: 20170710
